FAERS Safety Report 10587833 (Version 3)
Quarter: 2015Q3

REPORT INFORMATION
  Report Type: Report from Study
  Country: US (occurrence: US)
  Receive Date: 20141117
  Receipt Date: 20150929
  Transmission Date: 20151125
  Serious: Yes (Other)
  Sender: FDA-Public Use
  Company Number: US-SA-2014SA155514

PATIENT
  Sex: Female

DRUGS (4)
  1. AMPYRA [Concomitant]
     Active Substance: DALFAMPRIDINE
  2. ECOTRIN [Concomitant]
     Active Substance: ASPIRIN
  3. ZOCOR [Concomitant]
     Active Substance: SIMVASTATIN
  4. AUBAGIO [Suspect]
     Active Substance: TERIFLUNOMIDE
     Indication: MULTIPLE SCLEROSIS
     Route: 048
     Dates: start: 201407, end: 201506

REACTIONS (3)
  - Dysgraphia [Unknown]
  - Glaucoma [Unknown]
  - Reading disorder [Unknown]
